FAERS Safety Report 8581869-6 (Version None)
Quarter: 2012Q3

REPORT INFORMATION
  Report Type: 
  Country: None (occurrence: None)
  Receive Date: 20120809
  Receipt Date: 20120731
  Transmission Date: 20120928
  Serious: Yes (Hospitalization)
  Sender: FDA-Public Use
  Company Number: ES-SHIRE-SPV1-2012-00703

PATIENT
  Sex: Male

DRUGS (5)
  1. IDURSULFASE [Suspect]
     Indication: MUCOPOLYSACCHARIDOSIS II
     Dosage: 0.51 MG/KG, 1X/WEEK
     Route: 041
     Dates: start: 20090402
  2. MOMETASONA [Concomitant]
     Indication: RESPIRATORY DISORDER
     Dosage: 1 DF, 1X/DAY:QD
     Route: 045
     Dates: start: 20100101
  3. FLUTICASONE PROPIONATE [Concomitant]
     Indication: RESPIRATORY DISORDER
     Dosage: 2 DF, 2X/DAY:BID
     Dates: start: 20100101
  4. ALBUTEROL SULATE [Concomitant]
     Indication: RESPIRATORY DISORDER
     Dosage: 3 DF, 4X/DAY:QID
     Dates: start: 20100101
  5. DESLORATADINE [Concomitant]
     Indication: RESPIRATORY DISORDER
     Dosage: 5 ML, 1X/DAY:QD
     Route: 048
     Dates: start: 20100101

REACTIONS (1)
  - ADENOIDECTOMY [None]
